FAERS Safety Report 5838357-7 (Version None)
Quarter: 2008Q3

REPORT INFORMATION
  Report Type: 
  Country: None (occurrence: None)
  Receive Date: 20080808
  Receipt Date: 20080805
  Transmission Date: 20090109
  Serious: Yes (Hospitalization)
  Sender: FDA-Public Use
  Company Number: US-BRISTOL-MYERS SQUIBB COMPANY-14248991

PATIENT
  Age: 54 Year
  Sex: Male
  Weight: 134 kg

DRUGS (3)
  1. ERBITUX [Suspect]
     Indication: PHARYNGEAL CANCER STAGE UNSPECIFIED
     Dosage: INTERRUPTED ON 07JAN08;(474MG)CYCLE-2 ON 15JUL08
     Route: 042
     Dates: start: 20080624, end: 20080624
  2. CISPLATIN [Suspect]
     Indication: PHARYNGEAL CANCER STAGE UNSPECIFIED
     Dosage: 2ND COURSE TAKEN ON 15JUL08.
     Route: 042
     Dates: start: 20080624, end: 20080624
  3. RADIATION THERAPY [Suspect]
     Indication: PHARYNGEAL CANCER STAGE UNSPECIFIED
     Dosage: 35 DOSAGE FORM = 1120CGY;(800CGY)-01AUG08(35 FRACTIONS). DOSAGES:639.9, 4000, 1600.1, 3200, 1280.
     Dates: start: 20080624, end: 20080701

REACTIONS (10)
  - ABDOMINAL PAIN [None]
  - BLOOD AMYLASE ABNORMAL [None]
  - FACIAL PAIN [None]
  - HYPOTENSION [None]
  - INFECTION [None]
  - NAUSEA [None]
  - PYREXIA [None]
  - RASH [None]
  - SYNCOPE [None]
  - VOMITING [None]
